FAERS Safety Report 21554245 (Version 4)
Quarter: 2022Q4

REPORT INFORMATION
  Report Type: Other
  Country: US (occurrence: None)
  Receive Date: 20221104
  Receipt Date: 20221128
  Transmission Date: 20230112
  Serious: Yes (Death, Life-Threatening, Other)
  Sender: FDA-Public Use
  Company Number: US-ROCHE-3211487

PATIENT
  Sex: Male
  Weight: 66.284 kg

DRUGS (4)
  1. RITUXAN [Suspect]
     Active Substance: RITUXIMAB
     Indication: Neoplasm malignant
     Dosage: SUBSEQUENT DOSE OF RITUXAN IV, ONCE A MONTH ON 14/JAN/2021 TO /JUN/2021
     Route: 042
     Dates: start: 20210114, end: 202106
  2. RITUXAN [Suspect]
     Active Substance: RITUXIMAB
     Indication: Waldenstrom^s macroglobulinaemia
  3. BENDAMUSTINE [Concomitant]
     Active Substance: BENDAMUSTINE
     Indication: Waldenstrom^s macroglobulinaemia
     Dosage: EVERY 30 DAYS
     Dates: start: 202101, end: 202106
  4. AMLODIPINE [Concomitant]
     Active Substance: AMLODIPINE BESYLATE
     Indication: Hypertension
     Route: 048

REACTIONS (15)
  - Progressive multifocal leukoencephalopathy [Unknown]
  - Visual field defect [Unknown]
  - Weight decreased [Unknown]
  - General physical health deterioration [Unknown]
  - Feeling abnormal [Unknown]
  - Somnolence [Unknown]
  - Sinusitis [Recovered/Resolved]
  - Off label use [Unknown]
  - JC polyomavirus test positive [Unknown]
  - Paranasal sinus inflammation [Unknown]
  - Pneumonitis [Unknown]
  - Noninfective encephalitis [Unknown]
  - Cerebral disorder [Unknown]
  - Decreased appetite [Unknown]
  - Death [Fatal]

NARRATIVE: CASE EVENT DATE: 20210211
